FAERS Safety Report 13778448 (Version 2)
Quarter: 2017Q3

REPORT INFORMATION
  Report Type: Spontaneous
  Country: JP (occurrence: JP)
  Receive Date: 20170721
  Receipt Date: 20170818
  Transmission Date: 20171127
  Serious: Yes (Other)
  Sender: FDA-Public Use
  Company Number: JP-ROCHE-1965575

PATIENT
  Age: 75 Year
  Sex: Female

DRUGS (9)
  1. OFLOXACIN. [Concomitant]
     Active Substance: OFLOXACIN
     Route: 065
  2. DOCETAXEL. [Suspect]
     Active Substance: DOCETAXEL
     Indication: HER-2 POSITIVE BREAST CANCER
     Route: 051
     Dates: start: 200611, end: 200710
  3. TRASTUZUMAB. [Suspect]
     Active Substance: TRASTUZUMAB
     Route: 065
     Dates: start: 20151222
  4. VINORELBINE [Concomitant]
     Active Substance: VINORELBINE\VINORELBINE TARTRATE
  5. TRASTUZUMAB EMTANSINE [Suspect]
     Active Substance: ADO-TRASTUZUMAB EMTANSINE
     Indication: HER-2 POSITIVE BREAST CANCER
     Route: 065
     Dates: start: 201509
  6. DOCETAXEL. [Suspect]
     Active Substance: DOCETAXEL
     Route: 051
     Dates: start: 2013
  7. GATIFLOXACIN. [Concomitant]
     Active Substance: GATIFLOXACIN
     Indication: INFECTION PROPHYLAXIS
     Route: 065
  8. TRASTUZUMAB. [Suspect]
     Active Substance: TRASTUZUMAB
     Indication: HER-2 POSITIVE BREAST CANCER
     Route: 065
     Dates: start: 200611, end: 201010
  9. PACLITAXEL. [Concomitant]
     Active Substance: PACLITAXEL

REACTIONS (6)
  - Punctate keratitis [Unknown]
  - Eye pain [Unknown]
  - Foreign body sensation in eyes [Unknown]
  - Ocular neoplasm [Recovering/Resolving]
  - Corneal erosion [Recovering/Resolving]
  - Corneal disorder [Recovering/Resolving]

NARRATIVE: CASE EVENT DATE: 201306
